FAERS Safety Report 13663853 (Version 1)
Quarter: 2017Q2

REPORT INFORMATION
  Report Type: Spontaneous
  Country: US (occurrence: US)
  Receive Date: 20170619
  Receipt Date: 20170619
  Transmission Date: 20170830
  Serious: No
  Sender: FDA-Public Use
  Company Number: US-TEVA-694552USA

PATIENT
  Age: 67 Year
  Sex: Female
  Weight: 66.74 kg

DRUGS (1)
  1. TRAMADOL. [Suspect]
     Active Substance: TRAMADOL
     Indication: NEURALGIA
     Dates: start: 20160708

REACTIONS (4)
  - Abdominal pain [Unknown]
  - Drug ineffective [Unknown]
  - Product formulation issue [Unknown]
  - Peripheral swelling [Unknown]

NARRATIVE: CASE EVENT DATE: 20160708
